FAERS Safety Report 4602591-4 (Version None)
Quarter: 2005Q1

REPORT INFORMATION
  Report Type: 
  Country: None (occurrence: None)
  Receive Date: 20050307
  Receipt Date: 20050223
  Transmission Date: 20050727
  Serious: Yes (Other)
  Sender: FDA-Public Use
  Company Number: 2005037400

PATIENT
  Age: 58 Year
  Sex: Male
  Weight: 104.3273 kg

DRUGS (7)
  1. ZYVOX [Suspect]
     Indication: STAPHYLOCOCCAL INFECTION
     Dosage: 1200 MG (600 MG, BID), ORAL
     Route: 048
     Dates: start: 20050101, end: 20050101
  2. FLUOXETINE HYDROCHLORIDE [Concomitant]
  3. FLUTICASONE PROPIONATE [Concomitant]
  4. ALLERGRA-D (FEXOFENADINE, PSEUDOEPHEDRINE HYDROCHLORIDE) [Concomitant]
  5. MONTELUKAST SODIUM (MONTELUKAST SODIUM) [Concomitant]
  6. LIBRAX (CHLORDIAZEPOXIDE HYDROCHLORIDE, CLIDIIUM BROMIDE) [Concomitant]
  7. MELOXICAM [Concomitant]

REACTIONS (8)
  - ASTHENIA [None]
  - CULTURE POSITIVE [None]
  - DIZZINESS [None]
  - DRUG INEFFECTIVE [None]
  - PARAESTHESIA [None]
  - SINUS DISORDER [None]
  - STAPHYLOCOCCAL INFECTION [None]
  - VISION BLURRED [None]
